FAERS Safety Report 10528073 (Version 1)
Quarter: 2014Q4

REPORT INFORMATION
  Report Type: Spontaneous
  Country: US (occurrence: None)
  Receive Date: 20141017
  Receipt Date: 20141017
  Transmission Date: 20150528
  Serious: Yes (Disabling)
  Sender: FDA-Public Use
  Company Number: None

PATIENT
  Age: 46 Year
  Sex: Female
  Weight: 63.5 kg

DRUGS (4)
  1. SOMA [Concomitant]
     Active Substance: CARISOPRODOL
  2. KLONOPIN [Concomitant]
     Active Substance: CLONAZEPAM
  3. CYMBALTA [Suspect]
     Active Substance: DULOXETINE HYDROCHLORIDE
     Indication: NECK PAIN
     Dosage: 60 X 2 YEARS - 10/10/14 TO TAPER TO 30MG?30 MG 1 PILL A DAY ONCE  BY MOUTH
     Route: 048
     Dates: end: 20141010
  4. CYMBALTA [Suspect]
     Active Substance: DULOXETINE HYDROCHLORIDE
     Indication: ANXIETY
     Dosage: 60 X 2 YEARS - 10/10/14 TO TAPER TO 30MG?30 MG 1 PILL A DAY ONCE  BY MOUTH
     Route: 048
     Dates: end: 20141010

REACTIONS (6)
  - Crying [None]
  - Feeling abnormal [None]
  - Agitation [None]
  - Memory impairment [None]
  - Mood altered [None]
  - Depressed mood [None]

NARRATIVE: CASE EVENT DATE: 20141010
